FAERS Safety Report 15042795 (Version 1)
Quarter: 2018Q2

REPORT INFORMATION
  Report Type: Spontaneous
  Country: GB (occurrence: GB)
  Receive Date: 20180621
  Receipt Date: 20180621
  Transmission Date: 20180711
  Serious: Yes (Hospitalization, Other)
  Sender: FDA-Public Use
  Company Number: GB-PFIZER INC-2018199919

PATIENT
  Age: 36 Year
  Sex: Male

DRUGS (2)
  1. VALIUM [Suspect]
     Active Substance: DIAZEPAM
     Dosage: UNK
  2. PREGABALIN. [Suspect]
     Active Substance: PREGABALIN
     Dosage: UNK

REACTIONS (6)
  - Drug dependence [Unknown]
  - Withdrawal syndrome [Unknown]
  - Insomnia [Unknown]
  - Hyperhidrosis [Unknown]
  - Suicide attempt [Unknown]
  - Vomiting [Unknown]
